FAERS Safety Report 15691182 (Version 1)
Quarter: 2018Q4

REPORT INFORMATION
  Report Type: Spontaneous
  Country: US (occurrence: US)
  Receive Date: 20181205
  Receipt Date: 20181205
  Transmission Date: 20190205
  Serious: Yes (Other)
  Sender: FDA-Public Use
  Company Number: US-JAZZ-2018-US-016303

PATIENT
  Age: 20 Year
  Sex: Female
  Weight: 57.6 kg

DRUGS (1)
  1. XYREM [Suspect]
     Active Substance: SODIUM OXYBATE
     Indication: PRODUCT USED FOR UNKNOWN INDICATION
     Route: 048

REACTIONS (6)
  - Lethargy [Recovered/Resolved]
  - Narcolepsy [Unknown]
  - Mydriasis [Recovered/Resolved]
  - Cheyne-Stokes respiration [Recovered/Resolved]
  - Suicide attempt [Unknown]
  - Somnolence [Recovered/Resolved]

NARRATIVE: CASE EVENT DATE: 20181009
